FAERS Safety Report 4396960-8 (Version None)
Quarter: 2004Q2

REPORT INFORMATION
  Report Type: 
  Country: None (occurrence: None)
  Receive Date: 20040621
  Receipt Date: 20040105
  Transmission Date: 20050107
  Serious: Yes (Death)
  Sender: FDA-Public Use
  Company Number: USA-2004-0012325

PATIENT
  Age: 35 Year
  Sex: Female

DRUGS (11)
  1. OXYCODONE HCL [Suspect]
     Dosage: UNK UNK, UNK, UNKNOWN
     Route: 065
  2. ALPRAZOLAM [Suspect]
     Dosage: UNK UNK, UNK, UNKNOWN
     Route: 065
  3. DIAZEPAM [Suspect]
     Dosage: UNK UNK, UNK, UNKNOWN
     Route: 065
  4. FLUOXETINE [Suspect]
     Indication: DRUG USE FOR UNKNOWN INDICATION
     Dosage: UNK UNK, UNK, UNKNOWN
     Route: 065
  5. METHADONE HCL [Suspect]
     Indication: DRUG USE FOR UNKNOWN INDICATION
     Dosage: UNK UNK, UNK, UNKNOWN
     Route: 065
  6. PROMETHAZINE [Suspect]
     Indication: DRUG USE FOR UNKNOWN INDICATION
     Dosage: UNK UNK, UNK; UNKNOWN
     Route: 065
  7. HYDROXYZINE [Suspect]
     Indication: DRUG USE FOR UNKNOWN INDICATION
     Dosage: UNK UNK, UNK; UNKNOWN
     Route: 065
  8. TEMAZEPAM [Suspect]
     Indication: DRUG USE FOR UNKNOWN INDICATION
     Dosage: UNK UNK, UNK; UNKNOWN
     Route: 065
  9. PIPERAZINE CITRATE [Suspect]
     Indication: DRUG USE FOR UNKNOWN INDICATION
     Dosage: UNK UNK, UNK; UNKNOWN
     Route: 065
  10. OXAZEPAM [Suspect]
     Indication: DRUG USE FOR UNKNOWN INDICATION
     Dosage: UNK UNK, UNK; UNKNOWN
     Route: 065
  11. TRAZODONE HCL [Suspect]
     Indication: DRUG USE FOR UNKNOWN INDICATION
     Dosage: UNK UNK, UNK; UNKNOWN
     Route: 065

REACTIONS (1)
  - INTENTIONAL OVERDOSE [None]
